FAERS Safety Report 8325718 (Version 11)
Quarter: 2016Q3

REPORT INFORMATION
  Report Type: Spontaneous
  Country: US (occurrence: US)
  Receive Date: 20120106
  Receipt Date: 20160817
  Transmission Date: 20161109
  Serious: Yes (Death, Hospitalization, Disabling, Other)
  Sender: FDA-Public Use
  Company Number: US-009507513-1201USA00338

PATIENT
  Sex: Female
  Weight: 77.11 kg

DRUGS (4)
  1. ALENDRONATE SODIUM. [Suspect]
     Active Substance: ALENDRONATE SODIUM
     Indication: OSTEOPOROSIS
     Dosage: 70 MG, QW
     Route: 048
     Dates: start: 20060116
  2. MIACALCIN [Concomitant]
     Active Substance: CALCITONIN SALMON
     Indication: OSTEOPOROSIS
     Dates: start: 19990305
  3. FOSAMAX [Suspect]
     Active Substance: ALENDRONATE SODIUM
     Indication: OSTEOPOROSIS
     Dosage: 70 MG, QW
     Route: 048
     Dates: start: 1997, end: 201008
  4. ALENDRONATE SODIUM. [Suspect]
     Active Substance: ALENDRONATE SODIUM
     Dosage: 70 MG, QW
     Route: 048
     Dates: start: 200803, end: 2010

REACTIONS (107)
  - Fall [Unknown]
  - Rib fracture [Unknown]
  - Tooth disorder [Unknown]
  - Fibroma [Unknown]
  - Eructation [Unknown]
  - Lipogranuloma [Unknown]
  - Fatigue [Unknown]
  - Nocturia [Unknown]
  - Flatulence [Unknown]
  - Jaw disorder [Unknown]
  - Tooth disorder [Unknown]
  - Chronic obstructive pulmonary disease [Unknown]
  - Emphysema [Unknown]
  - Tinnitus [Unknown]
  - Pigment dispersion syndrome [Unknown]
  - Diverticulum intestinal [Unknown]
  - Ecchymosis [Unknown]
  - Vascular calcification [Unknown]
  - Atelectasis [Unknown]
  - Dysphagia [Unknown]
  - Infection [Unknown]
  - Iris transillumination defect [Unknown]
  - Lymphadenopathy [Unknown]
  - Hypoaesthesia [Unknown]
  - Spinal osteoarthritis [Not Recovered/Not Resolved]
  - Thoracic vertebral fracture [Unknown]
  - Jaw disorder [Unknown]
  - Atrial fibrillation [Unknown]
  - Femur fracture [Unknown]
  - Adverse event [Unknown]
  - Hypertension [Unknown]
  - Obesity [Unknown]
  - Arthritis [Unknown]
  - Joint injury [Unknown]
  - Cholelithiasis [Unknown]
  - Gastric disorder [Unknown]
  - Kyphosis [Not Recovered/Not Resolved]
  - Body height decreased [Not Recovered/Not Resolved]
  - Uterine disorder [Unknown]
  - Nephrolithiasis [Unknown]
  - Oesophageal stenosis [Unknown]
  - Gastrooesophageal reflux disease [Unknown]
  - Oedema peripheral [Unknown]
  - Drug ineffective [Unknown]
  - Femur fracture [Not Recovered/Not Resolved]
  - Pneumonia [Unknown]
  - Death [Fatal]
  - Tooth disorder [Unknown]
  - Seasonal allergy [Unknown]
  - Cholecystitis [Unknown]
  - Tooth fracture [Unknown]
  - Tooth fracture [Unknown]
  - Bronchitis [Unknown]
  - Dental caries [Unknown]
  - Inguinal hernia [Unknown]
  - Stress urinary incontinence [Unknown]
  - Palpitations [Unknown]
  - Cataract [Unknown]
  - Urinary tract infection [Unknown]
  - Wrist fracture [Unknown]
  - Arthropathy [Recovered/Resolved]
  - Intervertebral disc degeneration [Not Recovered/Not Resolved]
  - Pulmonary fibrosis [Unknown]
  - Impaired healing [Unknown]
  - Constipation [Recovering/Resolving]
  - Sinus disorder [Unknown]
  - Gastric mucosa erythema [Unknown]
  - Oesophageal disorder [Unknown]
  - Acquired oesophageal web [Unknown]
  - Infrequent bowel movements [Unknown]
  - Spinal compression fracture [Not Recovered/Not Resolved]
  - Asthenia [Unknown]
  - Bronchiectasis [Unknown]
  - Pain [Recovered/Resolved]
  - Tooth extraction [Unknown]
  - Osteoarthritis [Unknown]
  - Periodontitis [Unknown]
  - Diverticulum [Unknown]
  - Atrial fibrillation [Recovered/Resolved]
  - Foot fracture [Recovered/Resolved]
  - Foot fracture [Unknown]
  - Spinal flattening [Not Recovered/Not Resolved]
  - Osteopenia [Unknown]
  - Nephrolithiasis [Unknown]
  - Dyspepsia [Unknown]
  - Pain in extremity [Recovered/Resolved]
  - Pneumonia [Unknown]
  - Presbyacusis [Unknown]
  - Osteonecrosis of jaw [Not Recovered/Not Resolved]
  - Asthma [Unknown]
  - Anaemia [Unknown]
  - Sinusitis [Unknown]
  - Hiatus hernia [Unknown]
  - Abdominal hernia [Unknown]
  - Procedural haemorrhage [Recovering/Resolving]
  - Gastric polyps [Unknown]
  - Vascular insufficiency [Unknown]
  - Pollakiuria [Unknown]
  - Excessive cerumen production [Unknown]
  - Barrett^s oesophagus [Unknown]
  - Tendon rupture [Unknown]
  - Ulnar neuritis [Unknown]
  - Pulmonary mass [Unknown]
  - Lung infiltration [Unknown]
  - Back pain [Unknown]
  - Drug hypersensitivity [Unknown]
  - Gastritis [Unknown]

NARRATIVE: CASE EVENT DATE: 19970324
